FAERS Safety Report 23358882 (Version 2)
Quarter: 2024Q1

REPORT INFORMATION
  Report Type: Spontaneous
  Country: IN (occurrence: IN)
  Receive Date: 20240102
  Receipt Date: 20240105
  Transmission Date: 20240410
  Serious: Yes (Other)
  Sender: FDA-Public Use
  Company Number: IN-PFIZER INC-PV202300133319

PATIENT
  Age: 73 Year
  Sex: Female

DRUGS (2)
  1. PALBOCICLIB [Suspect]
     Active Substance: PALBOCICLIB
     Indication: Breast cancer metastatic
     Dosage: 100 MG ONCE DAILY, CYCLIC (DAY 1 TO 21, 2 CYCLES 2 MONTHS))
     Route: 048
  2. LETROZOLE [Concomitant]
     Active Substance: LETROZOLE
     Indication: Breast cancer metastatic
     Dosage: 2.5 MG

REACTIONS (9)
  - Neutropenia [Unknown]
  - Subdural haematoma [Unknown]
  - Headache [Unknown]
  - Haemoglobin abnormal [Unknown]
  - Total lung capacity abnormal [Unknown]
  - Platelet count abnormal [Unknown]
  - Impaired healing [Unknown]
  - Pain [Unknown]
  - General physical condition abnormal [Unknown]
